FAERS Safety Report 18733317 (Version 1)
Quarter: 2021Q1

REPORT INFORMATION
  Report Type: Spontaneous
  Country: US (occurrence: US)
  Receive Date: 20210113
  Receipt Date: 20210113
  Transmission Date: 20210419
  Serious: No
  Sender: FDA-Public Use
  Company Number: US-CADILA HEALTHCARE LIMITED-US-ZYDUS-057265

PATIENT
  Sex: Female

DRUGS (2)
  1. METOPROLOL 50 MILIGRAM TABLET EXTENDED RELEASE [Suspect]
     Active Substance: METOPROLOL
     Indication: HYPERTENSION
     Dosage: 50 MILLIGRAM, QD
     Route: 048
     Dates: end: 20201005
  2. METOPROLOL 50 MILIGRAM TABLET EXTENDED RELEASE [Suspect]
     Active Substance: METOPROLOL
     Indication: MIGRAINE

REACTIONS (9)
  - Paraesthesia [Recovered/Resolved]
  - Nausea [Recovered/Resolved]
  - Product use in unapproved indication [Recovered/Resolved]
  - Pruritus [Recovered/Resolved]
  - Dizziness [Recovered/Resolved]
  - Dyspepsia [Recovered/Resolved]
  - Abdominal pain upper [Recovered/Resolved]
  - Peripheral coldness [Recovered/Resolved]
  - Hot flush [Recovered/Resolved]
